FAERS Safety Report 6796018-4 (Version None)
Quarter: 2010Q2

REPORT INFORMATION
  Report Type: 
  Country: None (occurrence: None)
  Receive Date: 20100625
  Receipt Date: 20100617
  Transmission Date: 20101027
  Serious: Yes (Hospitalization, Other)
  Sender: FDA-Public Use
  Company Number: US-JNJFOC-20100600012

PATIENT
  Sex: Male
  Weight: 61.23 kg

DRUGS (2)
  1. UNSPECIFIED TRAMADOL [Suspect]
     Indication: BACK PAIN
     Dosage: 2-3 A DAY
     Route: 048
  2. FLEXERIL [Concomitant]
     Indication: BACK PAIN
     Route: 048

REACTIONS (5)
  - ADVERSE EVENT [None]
  - ROAD TRAFFIC ACCIDENT [None]
  - SOFT TISSUE INJURY [None]
  - SUICIDAL IDEATION [None]
  - SUICIDE ATTEMPT [None]
